FAERS Safety Report 9706564 (Version 2)
Quarter: 2013Q4

REPORT INFORMATION
  Report Type: Report from Study
  Country: US (occurrence: US)
  Receive Date: 20131125
  Receipt Date: 20131125
  Transmission Date: 20140711
  Serious: Yes (Hospitalization)
  Sender: FDA-Public Use
  Company Number: US-SHIRE-SPV1-2010-00137

PATIENT
  Age: 10 Year
  Sex: Male
  Weight: 35.5 kg

DRUGS (12)
  1. IDURSULFASE [Suspect]
     Indication: MUCOPOLYSACCHARIDOSIS II
     Dosage: 17.75 MG, 1X/WEEK
     Route: 041
     Dates: start: 20070312
  2. CELEXA                             /00582602/ [Concomitant]
     Indication: DEPRESSION
     Dosage: 40 MG, 1X/DAY:QD
     Route: 065
     Dates: start: 2009
  3. CLARITIN                           /00917501/ [Concomitant]
     Indication: PREMEDICATION
     Dosage: 10 MG, 1X/WEEK
     Route: 048
     Dates: start: 200703
  4. CLARITIN                           /00917501/ [Concomitant]
     Indication: HYPERSENSITIVITY
  5. TYLENOL                            /00020001/ [Concomitant]
     Indication: PREMEDICATION
     Dosage: 320 MG, 1X/WEEK
     Route: 048
     Dates: start: 200703
  6. TYLENOL                            /00020001/ [Concomitant]
     Indication: PYREXIA
  7. TYLENOL                            /00020001/ [Concomitant]
     Indication: PAIN
  8. XOPENEX [Concomitant]
     Indication: OBSTRUCTIVE AIRWAYS DISORDER
     Dosage: 0.63 MG, AS REQ^D
     Route: 055
  9. OXYCODONE [Concomitant]
     Indication: PAIN
     Dosage: 5.0 MG, AS REQ^D
     Route: 048
  10. OXYCONTIN [Concomitant]
     Indication: PAIN
     Dosage: 10 MG, 2X/DAY:BID
     Route: 048
  11. VITAMIN B 12 [Concomitant]
     Indication: SLEEP DISORDER
     Dosage: 400 MG, 1X/DAY:QD
     Route: 048
  12. TIZADINE [Concomitant]
     Indication: PAIN
     Dosage: 2.0 MG, 2X/DAY:BID
     Route: 048

REACTIONS (4)
  - Viral infection [Unknown]
  - Croup infectious [Unknown]
  - Stridor [Unknown]
  - Pyrexia [Unknown]
